FAERS Safety Report 17799267 (Version 5)
Quarter: 2020Q4

REPORT INFORMATION
  Report Type: Report from Study
  Country: US (occurrence: US)
  Receive Date: 20200518
  Receipt Date: 20201006
  Transmission Date: 20210113
  Serious: Yes (Hospitalization, Other)
  Sender: FDA-Public Use
  Company Number: US-EISAI MEDICAL RESEARCH-EC-2020-073931

PATIENT
  Age: 67 Year
  Sex: Female

DRUGS (2)
  1. LENVIMA [Suspect]
     Active Substance: LENVATINIB
     Indication: ENDOMETRIAL CANCER
     Route: 048
     Dates: start: 20200418, end: 202005
  2. LENVIMA [Suspect]
     Active Substance: LENVATINIB
     Route: 048
     Dates: start: 2020, end: 2020

REACTIONS (13)
  - Atrial fibrillation [Unknown]
  - Somnolence [Not Recovered/Not Resolved]
  - Cardiac disorder [Unknown]
  - Stomatitis [Unknown]
  - Cardiac failure congestive [Recovering/Resolving]
  - Infection [Unknown]
  - Dysphonia [Unknown]
  - Wound [Unknown]
  - Pulmonary embolism [Unknown]
  - Bone pain [Not Recovered/Not Resolved]
  - Bundle branch block left [Unknown]
  - Ventricular extrasystoles [Unknown]
  - Supraventricular extrasystoles [Unknown]

NARRATIVE: CASE EVENT DATE: 2020
